FAERS Safety Report 6077484-9 (Version None)
Quarter: 2009Q1

REPORT INFORMATION
  Report Type: 
  Country: None (occurrence: None)
  Receive Date: 20090213
  Receipt Date: 20081216
  Transmission Date: 20090719
  Serious: No
  Sender: FDA-Public Use
  Company Number: A0760459A

PATIENT
  Age: 30 Year
  Sex: Female

DRUGS (4)
  1. TREXIMET [Suspect]
     Indication: MIGRAINE
     Route: 048
     Dates: start: 20081023, end: 20081031
  2. FLU VACCINE [Suspect]
     Indication: PROPHYLAXIS
     Route: 065
     Dates: start: 20081023, end: 20081023
  3. IMURAN [Concomitant]
  4. LIALDA [Concomitant]

REACTIONS (2)
  - BURNING SENSATION [None]
  - PAIN [None]
